FAERS Safety Report 5645509-8 (Version None)
Quarter: 2008Q1

REPORT INFORMATION
  Report Type: 
  Country: None (occurrence: None)
  Receive Date: 20080229
  Receipt Date: 20080222
  Transmission Date: 20080703
  Serious: Yes (Death, Other)
  Sender: FDA-Public Use
  Company Number: JP-AVENTIS-200712626JP

PATIENT
  Age: 71 Year
  Sex: Male

DRUGS (1)
  1. TAXOTERE [Suspect]
     Dates: start: 20070509

REACTIONS (2)
  - LUNG NEOPLASM MALIGNANT [None]
  - PANCREATITIS ACUTE [None]
